FAERS Safety Report 4408802-2 (Version None)
Quarter: 2004Q3

REPORT INFORMATION
  Report Type: 
  Country: None (occurrence: None)
  Receive Date: 20040727
  Receipt Date: 20040720
  Transmission Date: 20050211
  Serious: Yes (Death, Hospitalization)
  Sender: FDA-Public Use
  Company Number: DE-MERCK-0407DEU00163

PATIENT

DRUGS (1)
  1. VIOXX [Suspect]
     Route: 048

REACTIONS (3)
  - BLOOD POTASSIUM INCREASED [None]
  - DEATH [None]
  - ELECTROCARDIOGRAM QT PROLONGED [None]
